FAERS Safety Report 7626880-4 (Version None)
Quarter: 2011Q3

REPORT INFORMATION
  Report Type: 
  Country: None (occurrence: None)
  Receive Date: 20110721
  Receipt Date: 20110712
  Transmission Date: 20111222
  Serious: Yes (Hospitalization, Other)
  Sender: FDA-Public Use
  Company Number: US-ASTRAZENECA-2011SE41818

PATIENT
  Age: 68 Year
  Sex: Female

DRUGS (1)
  1. NEXIUM [Suspect]
     Route: 048

REACTIONS (5)
  - COLON CANCER [None]
  - CHEMOTHERAPY [None]
  - HYSTERECTOMY [None]
  - INTESTINAL RESECTION [None]
  - ILL-DEFINED DISORDER [None]
